FAERS Safety Report 5658464-1 (Version None)
Quarter: 2008Q1

REPORT INFORMATION
  Report Type: 
  Country: None (occurrence: None)
  Receive Date: 20080310
  Receipt Date: 20070212
  Transmission Date: 20080703
  Serious: No
  Sender: FDA-Public Use
  Company Number: US-BAYER-200710492BCC

PATIENT
  Sex: Female
  Weight: 75 kg

DRUGS (6)
  1. ALEVE [Suspect]
     Indication: ARTHRALGIA
     Dosage: TOTAL DAILY DOSE: 220 MG  UNIT DOSE: 220 MG
     Route: 048
  2. PRILOSEC [Concomitant]
  3. ZANTAC [Concomitant]
  4. PAXIL [Concomitant]
  5. ADVAIR DISKUS 100/50 [Concomitant]
  6. BLOOD PRESSURE MEDICATION [Concomitant]

REACTIONS (1)
  - RASH GENERALISED [None]
